FAERS Safety Report 8220828 (Version 2)
Quarter: 2013Q3

REPORT INFORMATION
  Report Type: Report from Study
  Country: MX (occurrence: MX)
  Receive Date: 20111102
  Receipt Date: 20130806
  Transmission Date: 20140515
  Serious: Yes (Other)
  Sender: FDA-Public Use
  Company Number: PHHY2011MX94768

PATIENT
  Age: 75 Year
  Sex: Female

DRUGS (5)
  1. ACLASTA [Suspect]
     Indication: OSTEOPOROSIS
     Dosage: 5 MG\100ML PER YEAR
     Route: 042
     Dates: start: 200710
  2. ACLASTA [Suspect]
     Dosage: 5 MG/100 ML, UNK
     Route: 042
  3. ACLASTA [Suspect]
     Dosage: 5 MG/100 ML, UNK
     Route: 042
  4. ACLASTA [Suspect]
     Dosage: 5 MG\100ML PER YEAR
     Route: 042
     Dates: start: 201110
  5. NOLVADEX [Concomitant]
     Indication: NEOPLASM PROPHYLAXIS
     Dosage: 1 DF, QD

REACTIONS (2)
  - Breast cancer [Recovering/Resolving]
  - Disease progression [Recovering/Resolving]
